FAERS Safety Report 9553495 (Version 1)
Quarter: 2013Q3

REPORT INFORMATION
  Report Type: Spontaneous
  Country: IE (occurrence: IE)
  Receive Date: 20130925
  Receipt Date: 20130925
  Transmission Date: 20140515
  Serious: Yes (Other)
  Sender: FDA-Public Use
  Company Number: IE-PFIZER INC-2013271939

PATIENT
  Sex: 0

DRUGS (1)
  1. LYRICA [Suspect]

REACTIONS (1)
  - Drug abuse [Unknown]
